FAERS Safety Report 4506609-9 (Version None)
Quarter: 2004Q4

REPORT INFORMATION
  Report Type: 
  Country: None (occurrence: None)
  Receive Date: 20041122
  Receipt Date: 20040907
  Transmission Date: 20050328
  Serious: Yes (Death, Hospitalization)
  Sender: FDA-Public Use
  Company Number: JP-BRISTOL-MYERS SQUIBB COMPANY-12695425

PATIENT
  Age: 56 Year
  Sex: Female

DRUGS (1)
  1. TAXOL [Suspect]
     Indication: BREAST CANCER
     Route: 042
     Dates: start: 20040510, end: 20040726

REACTIONS (5)
  - BREAST CANCER [None]
  - DECREASED APPETITE [None]
  - HEPATIC CIRRHOSIS [None]
  - LIVER DISORDER [None]
  - METASTASES TO LIVER [None]
